FAERS Safety Report 20851798 (Version 2)
Quarter: 2022Q2

REPORT INFORMATION
  Report Type: Spontaneous
  Country: US (occurrence: US)
  Receive Date: 20220520
  Receipt Date: 20220526
  Transmission Date: 20220721
  Serious: No
  Sender: FDA-Public Use
  Company Number: US-BEH-2022145614

PATIENT
  Age: 88 Year
  Sex: Female

DRUGS (1)
  1. ZEMAIRA [Suspect]
     Active Substance: .ALPHA.1-PROTEINASE INHIBITOR HUMAN
     Dosage: UNK, QW
     Route: 065

REACTIONS (7)
  - Fatigue [Unknown]
  - Therapy interrupted [Unknown]
  - Feeling abnormal [Unknown]
  - Therapy interrupted [Unknown]
  - Asthenia [Unknown]
  - Therapy interrupted [Unknown]
  - Stress [Unknown]
